FAERS Safety Report 7199706-3 (Version None)
Quarter: 2010Q4

REPORT INFORMATION
  Report Type: 
  Country: None (occurrence: None)
  Receive Date: 20101228
  Receipt Date: 20101220
  Transmission Date: 20110411
  Serious: Yes (Life-Threatening, Other)
  Sender: FDA-Public Use
  Company Number: DK-JNJFOC-20101206856

PATIENT
  Age: 27 Year
  Sex: Male

DRUGS (3)
  1. IMODIUM [Suspect]
     Indication: FLATULENCE
     Route: 048
  2. IMODIUM [Suspect]
     Indication: DIARRHOEA
     Route: 048
  3. CHOLESTAGEL [Concomitant]
     Route: 048

REACTIONS (4)
  - AGGRESSION [None]
  - EUPHORIC MOOD [None]
  - OVERDOSE [None]
  - SELF INJURIOUS BEHAVIOUR [None]
